FAERS Safety Report 7194796-6 (Version None)
Quarter: 2010Q4

REPORT INFORMATION
  Report Type: 
  Country: None (occurrence: None)
  Receive Date: 20101223
  Receipt Date: 20101213
  Transmission Date: 20110411
  Serious: Yes (Hospitalization)
  Sender: FDA-Public Use
  Company Number: US-ELI_LILLY_AND_COMPANY-US201010003283

PATIENT
  Sex: Female

DRUGS (7)
  1. FORTEO [Suspect]
     Indication: OSTEOPOROSIS
     Dosage: 20 UG, DAILY (1/D)
     Dates: start: 20090401
  2. CRESTOR [Concomitant]
     Dosage: UNK, UNKNOWN
     Route: 065
  3. PHENOBARBITAL [Concomitant]
  4. PHENYTOIN [Concomitant]
  5. SERTRALINE HYDROCHLORIDE [Concomitant]
     Dosage: 100 MG, UNKNOWN
     Route: 065
  6. VITAMIN TAB [Concomitant]
  7. ALIGN [Concomitant]
     Dosage: UNK, UNKNOWN
     Route: 065

REACTIONS (4)
  - DEPRESSION [None]
  - DIVERTICULITIS [None]
  - DYSPNOEA [None]
  - IRRITABLE BOWEL SYNDROME [None]
